FAERS Safety Report 8844112 (Version 1)
Quarter: 2012Q4

REPORT INFORMATION
  Report Type: Report from Study
  Country: ES (occurrence: ES)
  Receive Date: 20121016
  Receipt Date: 20121016
  Transmission Date: 20130627
  Serious: Yes (Hospitalization)
  Sender: FDA-Public Use
  Company Number: ES-AMGEN-ESPCT2012038452

PATIENT
  Age: 76 Year
  Sex: Male

DRUGS (11)
  1. PANITUMUMAB [Suspect]
     Indication: COLORECTAL CANCER
     Dosage: 6 mg/kg, q2wk
     Route: 042
     Dates: start: 20120416
  2. FLUOROURACIL [Concomitant]
     Indication: COLORECTAL CANCER
     Dosage: UNK UNK, q2wk
     Route: 042
     Dates: start: 20120416
  3. OXALIPLATIN [Concomitant]
     Indication: COLORECTAL CANCER
     Dosage: 65 mg/m2, q2wk
     Route: 042
     Dates: start: 20120416
  4. FOLINIC ACID [Concomitant]
     Indication: COLORECTAL CANCER
     Dosage: 200 mg/m2, q2wk
     Route: 042
     Dates: start: 20120416
  5. LORAZEPAM [Concomitant]
  6. OMEPRAZOL [Concomitant]
  7. BACLOFENO [Concomitant]
     Dosage: UNK UNK, q12h
     Route: 048
     Dates: start: 20120419
  8. PRIMPERAN [Concomitant]
  9. HALOPERIDOL [Concomitant]
     Dosage: qd750 ml, UNK
     Route: 048
     Dates: start: 20120611
  10. BETADINE [Concomitant]
     Dosage: UNK
     Dates: start: 20120611
  11. LOPERAMIDE [Concomitant]
     Dosage: UNK
     Dates: start: 20120617

REACTIONS (1)
  - Gastrointestinal inflammation [Recovered/Resolved]
